FAERS Safety Report 13282278 (Version 1)
Quarter: 2017Q1

REPORT INFORMATION
  Report Type: Spontaneous
  Country: US (occurrence: US)
  Receive Date: 20170301
  Receipt Date: 20170301
  Transmission Date: 20170428
  Serious: No
  Sender: FDA-Public Use
  Company Number: US-INSYS THERAPEUTICS, INC-INS201501-000003

PATIENT
  Age: 41 Year
  Sex: Female
  Weight: 124.73 kg

DRUGS (3)
  1. SUBSYS [Suspect]
     Active Substance: FENTANYL
     Indication: COMPLEX REGIONAL PAIN SYNDROME
  2. OXYCODONE [Concomitant]
     Active Substance: OXYCODONE
     Indication: PAIN
  3. SUBSYS [Suspect]
     Active Substance: FENTANYL
     Indication: CANCER PAIN
     Dates: start: 201408

REACTIONS (4)
  - Burning sensation [Recovered/Resolved]
  - Product quality issue [Unknown]
  - Drug withdrawal syndrome [Unknown]
  - Accidental exposure to product [Unknown]

NARRATIVE: CASE EVENT DATE: 20141228
